FAERS Safety Report 23016870 (Version 1)
Quarter: 2023Q4

REPORT INFORMATION
  Report Type: Spontaneous
  Country: US (occurrence: US)
  Receive Date: 20231002
  Receipt Date: 20231002
  Transmission Date: 20240109
  Serious: No
  Sender: FDA-Public Use
  Company Number: US-drreddys-LIT/USA/23/0176719

PATIENT
  Age: 45 Year
  Sex: Female

DRUGS (5)
  1. RISPERIDONE [Suspect]
     Active Substance: RISPERIDONE
     Indication: Isodicentric chromosome 15 syndrome
  2. HALOPERIDOL [Suspect]
     Active Substance: HALOPERIDOL
     Indication: Isodicentric chromosome 15 syndrome
  3. HALOPERIDOL [Suspect]
     Active Substance: HALOPERIDOL
     Indication: Intentional self-injury
  4. CARBAMAZEPINE [Concomitant]
     Active Substance: CARBAMAZEPINE
     Indication: Seizure
  5. CARBAMAZEPINE [Concomitant]
     Active Substance: CARBAMAZEPINE
     Indication: Isodicentric chromosome 15 syndrome

REACTIONS (1)
  - Drug ineffective for unapproved indication [Unknown]
